FAERS Safety Report 5741990-4 (Version None)
Quarter: 2008Q2

REPORT INFORMATION
  Report Type: 
  Country: None (occurrence: None)
  Receive Date: 20080519
  Receipt Date: 20080506
  Transmission Date: 20081010
  Serious: Yes (Hospitalization, Other)
  Sender: FDA-Public Use
  Company Number: US-MERCK-0705USA02790

PATIENT
  Age: 56 Year
  Sex: Male

DRUGS (6)
  1. FOSAMAX [Suspect]
     Indication: RHEUMATOID ARTHRITIS
     Route: 048
     Dates: start: 20030629, end: 20040801
  2. FOSAMAX [Suspect]
     Route: 048
     Dates: start: 20040220, end: 20060701
  3. FOSAMAX [Suspect]
     Route: 048
     Dates: start: 19990401, end: 20031101
  4. FOSAMAX [Suspect]
     Route: 048
     Dates: start: 20031121, end: 20040101
  5. FOSAMAX [Suspect]
     Route: 048
     Dates: start: 20040122, end: 20040201
  6. [THERAPY UNSPECIFIED] [Concomitant]
     Indication: RHEUMATOID ARTHRITIS
     Route: 065
     Dates: start: 20020101, end: 20060301

REACTIONS (49)
  - ANOXIC ENCEPHALOPATHY [None]
  - ARTHRALGIA [None]
  - ARTHROPATHY [None]
  - BACK DISORDER [None]
  - BENIGN PROSTATIC HYPERPLASIA [None]
  - BURSA DISORDER [None]
  - BURSITIS [None]
  - CARDIAC MURMUR [None]
  - CARDIO-RESPIRATORY ARREST [None]
  - CATARACT [None]
  - CORONARY ARTERY DISEASE [None]
  - DELIRIUM [None]
  - DEPRESSION [None]
  - DRUG ADMINISTRATION ERROR [None]
  - ESCHERICHIA BACTERAEMIA [None]
  - GALLBLADDER DISORDER [None]
  - HYPERLIPIDAEMIA [None]
  - HYPERTENSION [None]
  - HYPONATRAEMIA [None]
  - INFECTION [None]
  - INTERVERTEBRAL DISC PROTRUSION [None]
  - MUSCLE DISORDER [None]
  - NEUROPATHY PERIPHERAL [None]
  - OEDEMA MOUTH [None]
  - ORAL PAIN [None]
  - OSTEOPOROSIS [None]
  - PAIN [None]
  - PAIN IN EXTREMITY [None]
  - PAIN IN JAW [None]
  - PEPTIC ULCER [None]
  - REFLUX OESOPHAGITIS [None]
  - RENAL FAILURE ACUTE [None]
  - RESPIRATORY FAILURE [None]
  - RHEUMATOID ARTHRITIS [None]
  - SEPTIC SHOCK [None]
  - SKIN ULCER [None]
  - SLEEP DISORDER [None]
  - STRESS [None]
  - SWELLING [None]
  - TENDONITIS [None]
  - TONGUE DISORDER [None]
  - TOOTH FRACTURE [None]
  - TOOTH LOSS [None]
  - UPPER GASTROINTESTINAL HAEMORRHAGE [None]
  - URINARY TRACT DISORDER [None]
  - URINARY TRACT INFECTION [None]
  - UROSEPSIS [None]
  - VIRAL INFECTION [None]
  - WOUND INFECTION STAPHYLOCOCCAL [None]
